FAERS Safety Report 8330511-8 (Version None)
Quarter: 2012Q2

REPORT INFORMATION
  Report Type: 
  Country: None (occurrence: None)
  Receive Date: 20120502
  Receipt Date: 20120403
  Transmission Date: 20120825
  Serious: No
  Sender: FDA-Public Use
  Company Number: US-AMGEN-USASP2012021261

PATIENT
  Age: 30 Year
  Sex: Female

DRUGS (1)
  1. ENBREL [Suspect]
     Indication: RHEUMATOID ARTHRITIS
     Dosage: UNK
     Dates: start: 20080111

REACTIONS (5)
  - URINARY TRACT INFECTION [None]
  - WOUND INFECTION [None]
  - RHEUMATOID ARTHRITIS [None]
  - SINUSITIS [None]
  - LOCALISED INFECTION [None]
